FAERS Safety Report 12718602 (Version 12)
Quarter: 2018Q4

REPORT INFORMATION
  Report Type: Report from Study
  Country: US (occurrence: US)
  Receive Date: 20160906
  Receipt Date: 20181120
  Transmission Date: 20190204
  Serious: Yes (Hospitalization, Other)
  Sender: FDA-Public Use
  Company Number: US-ACTELION-A-US2016-141613

PATIENT
  Age: 70 Year
  Sex: Male
  Weight: 124.72 kg

DRUGS (5)
  1. RIOCIGUAT. [Concomitant]
     Active Substance: RIOCIGUAT
  2. OPSUMIT [Suspect]
     Active Substance: MACITENTAN
     Indication: PULMONARY HYPERTENSION
     Dosage: 10 MG, QD
     Route: 048
     Dates: start: 20150502
  3. TYVASO [Concomitant]
     Active Substance: TREPROSTINIL
  4. DILTIAZEM. [Concomitant]
     Active Substance: DILTIAZEM
  5. WARFARIN [Concomitant]
     Active Substance: WARFARIN

REACTIONS (18)
  - Intestinal obstruction [Unknown]
  - Oliguria [Unknown]
  - Flushing [Unknown]
  - Hernia repair [Unknown]
  - Abdominal pain [Unknown]
  - Aspartate aminotransferase decreased [Recovering/Resolving]
  - Pulmonary arterial hypertension [Unknown]
  - Dyspnoea [Unknown]
  - Nausea [Unknown]
  - Vomiting [Unknown]
  - Product dose omission [Unknown]
  - Diarrhoea [Unknown]
  - Depression [Unknown]
  - Abdominal distension [Unknown]
  - Cough [Unknown]
  - Small intestinal obstruction [Recovered/Resolved]
  - Stomal hernia [Unknown]
  - Condition aggravated [Unknown]

NARRATIVE: CASE EVENT DATE: 20160815
